FAERS Safety Report 17642474 (Version 1)
Quarter: 2020Q2

REPORT INFORMATION
  Report Type: Spontaneous
  Country: US (occurrence: US)
  Receive Date: 20200408
  Receipt Date: 20200408
  Transmission Date: 20200713
  Serious: No
  Sender: FDA-Public Use
  Company Number: US-ALLERGAN-1935213US

PATIENT
  Age: 61 Year
  Sex: Female

DRUGS (9)
  1. POTASSIUM [Concomitant]
     Active Substance: POTASSIUM
  2. LOSARTAN. [Concomitant]
     Active Substance: LOSARTAN
  3. LILETTA [Suspect]
     Active Substance: LEVONORGESTREL
     Indication: CERVICAL DYSPLASIA
     Dosage: 52 MG, SINGLE
     Route: 015
     Dates: start: 20190823, end: 20190823
  4. ELIQUIS [Concomitant]
     Active Substance: APIXABAN
  5. TRIAMTERENE. [Concomitant]
     Active Substance: TRIAMTERENE
  6. LEVOTHYROXINE. [Concomitant]
     Active Substance: LEVOTHYROXINE
  7. VITAMIN D [Concomitant]
     Active Substance: VITAMIN D NOS
  8. MELOXICAM. [Concomitant]
     Active Substance: MELOXICAM
  9. HYDROCHLOROTHIAZIDE. [Concomitant]
     Active Substance: HYDROCHLOROTHIAZIDE

REACTIONS (2)
  - Off label use [Unknown]
  - Presyncope [Recovered/Resolved]

NARRATIVE: CASE EVENT DATE: 20190823
